FAERS Safety Report 9780346 (Version 2)
Quarter: 2013Q4

REPORT INFORMATION
  Report Type: Spontaneous
  Country: CH (occurrence: CH)
  Receive Date: 20131224
  Receipt Date: 20131231
  Transmission Date: 20140711
  Serious: Yes (Other)
  Sender: FDA-Public Use
  Company Number: CH-009507513-1312CHE009304

PATIENT
  Age: 21 Year
  Sex: Female

DRUGS (3)
  1. VELMETIA [Suspect]
     Indication: DIABETES MELLITUS
     Dosage: 50/1000MG, QD
     Route: 048
     Dates: start: 2012, end: 201212
  2. LANTUS [Suspect]
     Indication: DIABETES MELLITUS
     Dosage: 32 IU, QD/TID
     Route: 058
  3. HUMALOG [Suspect]
     Indication: DIABETES MELLITUS
     Dosage: 8 IU, TID
     Route: 058

REACTIONS (1)
  - Exposure during pregnancy [Recovered/Resolved]
